FAERS Safety Report 17039469 (Version 2)
Quarter: 2019Q4

REPORT INFORMATION
  Report Type: Spontaneous
  Country: PT (occurrence: PT)
  Receive Date: 20191115
  Receipt Date: 20191212
  Transmission Date: 20200122
  Serious: Yes (Other)
  Sender: FDA-Public Use
  Company Number: PT-009507513-1911PRT004860

PATIENT
  Sex: Male

DRUGS (15)
  1. GABAPENTIN. [Concomitant]
     Active Substance: GABAPENTIN
     Dosage: 300 MILLIGRAM, EVERY 8 HOURS
  2. ROSUVASTATIN. [Concomitant]
     Active Substance: ROSUVASTATIN
     Dosage: 10 MILLIGRAM, DAILY
  3. ALLOPURINOL. [Concomitant]
     Active Substance: ALLOPURINOL
     Dosage: 100 MILLIGRAM, DAILY
  4. KEYTRUDA [Suspect]
     Active Substance: PEMBROLIZUMAB
     Dosage: 200 MILLIGRAM, EVERY 21 DAYS
     Route: 042
     Dates: start: 20180723
  5. KEYTRUDA [Suspect]
     Active Substance: PEMBROLIZUMAB
     Dosage: 200 MILLIGRAM, EVERY 21 DAYS
     Route: 042
     Dates: start: 20190531
  6. KEYTRUDA [Suspect]
     Active Substance: PEMBROLIZUMAB
     Indication: BLADDER CANCER
     Dosage: 200 MILLIGRAM, EVERY 21 DAYS
     Route: 042
     Dates: start: 20180123, end: 20180626
  7. CALCIUM SANDOZ FORTE [Concomitant]
     Dosage: 1500 MG, DAILY
  8. AMITRIPTYLINE HYDROCHLORIDE. [Concomitant]
     Active Substance: AMITRIPTYLINE HYDROCHLORIDE
     Dosage: 25 MILLIGRAM, DAILY AT BEDTIME
     Dates: start: 201109
  9. PALEXIA [Concomitant]
     Active Substance: TAPENTADOL HYDROCHLORIDE
     Dosage: 100 MILLIGRAM, TWICE, DAILY
  10. DIPYRONE [Concomitant]
     Active Substance: DIPYRONE
     Dosage: 575 MILLIGRAM, TWICE, DAILY
  11. ACETAMINOPHEN. [Concomitant]
     Active Substance: ACETAMINOPHEN
     Dosage: IN SOS, IF IN PAIN
  12. OMEPRAZOLE. [Concomitant]
     Active Substance: OMEPRAZOLE
     Dosage: 20 MILLIGRAM, DAILY
  13. SERTRALINE HYDROCHLORIDE. [Concomitant]
     Active Substance: SERTRALINE HYDROCHLORIDE
     Dosage: 100 MG, DAILY
  14. CLONAZEPAM. [Concomitant]
     Active Substance: CLONAZEPAM
     Dosage: 0.5 MILLIGRAM, DAILY
  15. GLUCOSAMINE [Concomitant]
     Active Substance: GLUCOSAMINE
     Dosage: 1500 MG, DAILY

REACTIONS (10)
  - Inappropriate schedule of product administration [Unknown]
  - Pyrexia [Unknown]
  - Fatigue [Unknown]
  - Depression [Unknown]
  - General physical health deterioration [Unknown]
  - Productive cough [Unknown]
  - Tooth abscess [Unknown]
  - Rhinitis allergic [Unknown]
  - Mood disorder due to a general medical condition [Unknown]
  - Blood corticotrophin increased [Unknown]

NARRATIVE: CASE EVENT DATE: 2018
